FAERS Safety Report 25860340 (Version 1)
Quarter: 2025Q3

REPORT INFORMATION
  Report Type: Spontaneous
  Country: US (occurrence: US)
  Receive Date: 20250929
  Receipt Date: 20250929
  Transmission Date: 20251021
  Serious: No
  Sender: DR REDDYS
  Company Number: US-DRL-USA-USA/2025/09/014044

PATIENT
  Age: 80 Year
  Sex: Male
  Weight: 73.48 kg

DRUGS (1)
  1. OMEPRAZOLE [Suspect]
     Active Substance: OMEPRAZOLE
     Indication: Dyspepsia
     Dosage: UNIDENTIFIABLE NUMBER: 150092369
     Route: 065

REACTIONS (1)
  - Wrong technique in product usage process [Unknown]
